FAERS Safety Report 16278452 (Version 10)
Quarter: 2021Q2

REPORT INFORMATION
  Report Type: Spontaneous
  Country: MX (occurrence: MX)
  Receive Date: 20190506
  Receipt Date: 20210429
  Transmission Date: 20210716
  Serious: Yes (Death, Other)
  Sender: FDA-Public Use
  Company Number: MX-ASTRAZENECA-2019SE68717

PATIENT
  Age: 509 Month
  Sex: Female
  Weight: 61 kg

DRUGS (21)
  1. LYNPARZA [Suspect]
     Active Substance: OLAPARIB
     Indication: OVARIAN CANCER
     Route: 048
  2. LYNPARZA [Suspect]
     Active Substance: OLAPARIB
     Indication: OVARIAN CANCER
     Route: 048
     Dates: start: 20190523
  3. ATEMPERATOR [Concomitant]
     Indication: SEIZURE
     Route: 048
     Dates: start: 20181208
  4. FENITOINA [Concomitant]
     Active Substance: PHENYTOIN
     Indication: SEIZURE
     Dosage: UNKNOWN
     Route: 065
     Dates: start: 20181222, end: 20181229
  5. LYNPARZA [Suspect]
     Active Substance: OLAPARIB
     Indication: BREAST CANCER FEMALE
     Route: 048
     Dates: start: 201901
  6. ARANTO TEA [Concomitant]
     Indication: NEOPLASM MALIGNANT
     Dosage: UNKNOWN
     Route: 048
     Dates: start: 20180501
  7. LYNPARZA [Suspect]
     Active Substance: OLAPARIB
     Indication: BREAST CANCER FEMALE
     Route: 048
  8. LYNPARZA [Suspect]
     Active Substance: OLAPARIB
     Indication: BREAST CANCER FEMALE
     Route: 048
     Dates: start: 20190523
  9. LYNPARZA [Suspect]
     Active Substance: OLAPARIB
     Indication: BREAST CANCER FEMALE
     Route: 048
     Dates: start: 20190301
  10. LYNPARZA [Suspect]
     Active Substance: OLAPARIB
     Indication: BREAST CANCER FEMALE
     Route: 048
     Dates: start: 20190523
  11. LYNPARZA [Suspect]
     Active Substance: OLAPARIB
     Indication: OVARIAN CANCER
     Route: 048
     Dates: start: 20181222
  12. LYNPARZA [Suspect]
     Active Substance: OLAPARIB
     Indication: BREAST CANCER FEMALE
     Route: 048
     Dates: start: 20181222
  13. LYNPARZA [Suspect]
     Active Substance: OLAPARIB
     Indication: OVARIAN CANCER
     Route: 048
     Dates: start: 20190301
  14. LYNPARZA [Suspect]
     Active Substance: OLAPARIB
     Indication: OVARIAN CANCER
     Route: 048
     Dates: start: 201901
  15. LYNPARZA [Suspect]
     Active Substance: OLAPARIB
     Indication: BREAST CANCER FEMALE
     Route: 048
     Dates: start: 20190413, end: 20210417
  16. LYNPARZA [Suspect]
     Active Substance: OLAPARIB
     Indication: OVARIAN CANCER
     Route: 048
     Dates: start: 201712
  17. LYNPARZA [Suspect]
     Active Substance: OLAPARIB
     Indication: BREAST CANCER FEMALE
     Route: 048
     Dates: start: 201712
  18. LYNPARZA [Suspect]
     Active Substance: OLAPARIB
     Indication: OVARIAN CANCER
     Route: 048
     Dates: start: 20190523
  19. LYNPARZA [Suspect]
     Active Substance: OLAPARIB
     Indication: OVARIAN CANCER
     Route: 048
     Dates: start: 20190413, end: 20210417
  20. NATURALAG [Concomitant]
     Indication: DRY EYE
     Dosage: UNKNOWN
     Route: 047
     Dates: start: 20180101
  21. NATURALAG [Concomitant]
     Indication: DRY EYE
     Dosage: 2 DROPS AS REQUIRED UNKNOWN
     Route: 047
     Dates: start: 20190501

REACTIONS (23)
  - Death [Fatal]
  - Abdominal discomfort [Recovered/Resolved]
  - Vaginal infection [Unknown]
  - Contraindicated product administered [Recovered/Resolved]
  - Urinary tract infection [Recovered/Resolved]
  - Nephritis [Not Recovered/Not Resolved]
  - Vulvovaginal dryness [Recovered/Resolved]
  - Weight decreased [Recovered/Resolved]
  - Dry mouth [Unknown]
  - Colitis [Recovered/Resolved]
  - Dry eye [Not Recovered/Not Resolved]
  - Initial insomnia [Recovering/Resolving]
  - Vaginal haemorrhage [Unknown]
  - Dry skin [Unknown]
  - Ear pruritus [Not Recovered/Not Resolved]
  - Eye pruritus [Not Recovered/Not Resolved]
  - Headache [Recovered/Resolved]
  - Fatigue [Not Recovered/Not Resolved]
  - Musculoskeletal chest pain [Recovered/Resolved]
  - Pain in extremity [Recovering/Resolving]
  - Weight increased [Unknown]
  - Influenza [Recovering/Resolving]
  - Gastritis [Recovered/Resolved]

NARRATIVE: CASE EVENT DATE: 201808
